FAERS Safety Report 8129087-X (Version None)
Quarter: 2012Q1

REPORT INFORMATION
  Report Type: 
  Country: None (occurrence: None)
  Receive Date: 20120210
  Receipt Date: 20110915
  Transmission Date: 20120608
  Serious: Yes (Other)
  Sender: FDA-Public Use
  Company Number: US-BRISTOL-MYERS SQUIBB COMPANY-16068066

PATIENT

DRUGS (1)
  1. ORENCIA [Suspect]
     Dosage: 6 INFUSIONS

REACTIONS (1)
  - ANAPHYLACTIC REACTION [None]
